FAERS Safety Report 21077892 (Version 2)
Quarter: 2022Q4

REPORT INFORMATION
  Report Type: Report from Study
  Country: DE (occurrence: DE)
  Receive Date: 20220713
  Receipt Date: 20221203
  Transmission Date: 20230112
  Serious: Yes (Hospitalization)
  Sender: FDA-Public Use
  Company Number: DE-NOVARTISPH-NVSC2022DE156802

PATIENT
  Sex: Female

DRUGS (4)
  1. COSENTYX [Suspect]
     Active Substance: SECUKINUMAB
     Indication: Psoriatic arthropathy
     Dosage: 300 MG
     Route: 065
     Dates: start: 20210305
  2. COSENTYX [Suspect]
     Active Substance: SECUKINUMAB
     Dosage: 300 MG, QMO
     Route: 065
     Dates: start: 20210402
  3. IBUPROFEN [Suspect]
     Active Substance: IBUPROFEN
     Indication: Psoriatic arthropathy
     Dosage: 400 MG, QW
     Route: 065
     Dates: start: 20180615
  4. METHOTREXATE [Concomitant]
     Active Substance: METHOTREXATE
     Indication: Product used for unknown indication
     Dosage: 15 MG
     Route: 048
     Dates: start: 20190716, end: 20210526

REACTIONS (1)
  - Depression [Unknown]

NARRATIVE: CASE EVENT DATE: 20211115
